FAERS Safety Report 7522742-1 (Version None)
Quarter: 2011Q2

REPORT INFORMATION
  Report Type: 
  Country: None (occurrence: None)
  Receive Date: 20110603
  Receipt Date: 20110525
  Transmission Date: 20111010
  Serious: Yes (Death, Hospitalization)
  Sender: FDA-Public Use
  Company Number: US-ACTELION-A-US2011-48485

PATIENT

DRUGS (1)
  1. TRACLEER [Suspect]
     Indication: PULMONARY ARTERIAL HYPERTENSION
     Dosage: 62.5 MG, BID
     Route: 048
     Dates: start: 20101230, end: 20110506

REACTIONS (5)
  - RESPIRATORY FAILURE [None]
  - ATRIAL FIBRILLATION [None]
  - SEPSIS [None]
  - RENAL FAILURE [None]
  - ARTERIOSCLEROSIS CORONARY ARTERY [None]
